FAERS Safety Report 8873922 (Version 2)
Quarter: 2012Q4

REPORT INFORMATION
  Report Type: 
  Country: AU (occurrence: AU)
  Receive Date: 20121030
  Receipt Date: 20121211
  Transmission Date: 20130627
  Serious: Yes (Hospitalization)
  Sender: FDA-Public Use
  Company Number: AU-VERTEX PHARMACEUTICAL INC.-2012-023620

PATIENT
  Age: 45 Year
  Sex: Female

DRUGS (11)
  1. INCIVEK [Suspect]
     Indication: HEPATITIS C
     Dosage: 2250 mg, qd
     Route: 048
     Dates: start: 20120829
  2. PEGASYS [Suspect]
     Indication: HEPATITIS C
     Dosage: 180 ?g, qw
     Route: 058
     Dates: start: 20120829
  3. COPEGUS [Suspect]
     Indication: HEPATITIS C
     Dosage: 400 mg, qd
     Route: 048
     Dates: start: 20120829
  4. RISPERDAL [Suspect]
     Dosage: UNK
     Dates: start: 20120925, end: 20121110
  5. BETAMETHASONE VALERIATE W/GENTAMICIN SULFATE [Concomitant]
  6. SCHERIPROCT                        /00212301/ [Concomitant]
     Dosage: UNK
     Dates: start: 20120912, end: 20121101
  7. ALPRAZOLAM [Concomitant]
     Dosage: UNK
     Dates: start: 20120925, end: 20121031
  8. ADVANTAN [Concomitant]
     Dosage: UNK
     Dates: start: 20120925
  9. UNASYN                             /00903601/ [Concomitant]
  10. ZYPREXA [Concomitant]
     Dosage: UNK
     Dates: start: 20121110
  11. RETACRIT [Concomitant]
     Dosage: UNK
     Dates: start: 20121015, end: 20121107

REACTIONS (6)
  - Hypotension [Not Recovered/Not Resolved]
  - Circulatory collapse [Unknown]
  - Urinary tract infection [Unknown]
  - Panic disorder [Recovered/Resolved]
  - Vomiting [Not Recovered/Not Resolved]
  - Nausea [Not Recovered/Not Resolved]
